FAERS Safety Report 13366757 (Version 1)
Quarter: 2017Q1

REPORT INFORMATION
  Report Type: Spontaneous
  Country: US (occurrence: US)
  Receive Date: 20170323
  Receipt Date: 20170323
  Transmission Date: 20170429
  Serious: Yes (Disabling)
  Sender: FDA-Public Use
  Company Number: None

PATIENT
  Age: 65 Year
  Sex: Female
  Weight: 72 kg

DRUGS (8)
  1. METFORMIN [Concomitant]
     Active Substance: METFORMIN HYDROCHLORIDE
  2. SUPER ENZYMES [Concomitant]
  3. SPIROLACTONE [Concomitant]
     Active Substance: SPIRONOLACTONE
  4. FOLIC ACID. [Concomitant]
     Active Substance: FOLIC ACID
  5. COQ10 [Concomitant]
     Active Substance: UBIDECARENONE
  6. GERITOL [Concomitant]
     Active Substance: MINERALS\VITAMINS
  7. LESCOL [Concomitant]
     Active Substance: FLUVASTATIN SODIUM
  8. REPATHA [Suspect]
     Active Substance: EVOLOCUMAB
     Indication: CORONARY ARTERY DISEASE
     Dosage: QUANTITY:2 INJECTION(S);OTHER FREQUENCY:EVERY 2 WEEKS;OTHER ROUTE:INJECTION?
     Dates: start: 20150912, end: 20170303

REACTIONS (7)
  - Back pain [None]
  - Influenza like illness [None]
  - Pain in extremity [None]
  - Hypotension [None]
  - Blood glucose increased [None]
  - Insomnia [None]
  - Therapy cessation [None]

NARRATIVE: CASE EVENT DATE: 20170304
